APPROVED DRUG PRODUCT: GLYCOPYRROLATE
Active Ingredient: GLYCOPYRROLATE
Strength: 0.2MG/ML
Dosage Form/Route: INJECTABLE;INJECTION
Application: A210244 | Product #001
Applicant: EUGIA PHARMA SPECIALITIES LTD
Approved: Nov 28, 2018 | RLD: No | RS: No | Type: DISCN